FAERS Safety Report 6261880-0 (Version None)
Quarter: 2009Q3

REPORT INFORMATION
  Report Type: 
  Country: None (occurrence: None)
  Receive Date: 20090709
  Receipt Date: 20090630
  Transmission Date: 20100115
  Serious: Yes (Other)
  Sender: FDA-Public Use
  Company Number: A0795832A

PATIENT
  Sex: Male

DRUGS (2)
  1. ADVAIR HFA [Suspect]
     Indication: CHRONIC OBSTRUCTIVE PULMONARY DISEASE
     Route: 055
  2. PLAVIX [Concomitant]

REACTIONS (8)
  - ABNORMAL DREAMS [None]
  - ANGIOPLASTY [None]
  - AORTIC ANEURYSM [None]
  - CATARACT OPERATION [None]
  - EYE LASER SURGERY [None]
  - INJURY [None]
  - NIGHTMARE [None]
  - STENT PLACEMENT [None]
